FAERS Safety Report 11653276 (Version 4)
Quarter: 2016Q2

REPORT INFORMATION
  Report Type: Report from Study
  Country: US (occurrence: US)
  Receive Date: 20151022
  Receipt Date: 20160427
  Transmission Date: 20160815
  Serious: Yes (Other)
  Sender: FDA-Public Use
  Company Number: US-ARIAD PHARMACEUTICALS, INC-2015US005597

PATIENT
  Age: 39 Year
  Sex: Male

DRUGS (5)
  1. ICLUSIG [Suspect]
     Active Substance: PONATINIB
     Indication: CHRONIC MYELOID LEUKAEMIA
     Dosage: 45 MG, QD
     Route: 048
     Dates: start: 20150909, end: 20150921
  2. ALLOPURINOL. [Concomitant]
     Active Substance: ALLOPURINOL
     Indication: PRODUCT USED FOR UNKNOWN INDICATION
     Dosage: 300 MG, QD
  3. TRAMADOL. [Concomitant]
     Active Substance: TRAMADOL
     Indication: HYPERTENSION
     Dosage: 5 MG, PRN
     Dates: start: 20150925
  4. METFORMIN [Concomitant]
     Active Substance: METFORMIN HYDROCHLORIDE
     Indication: DIABETES MELLITUS
     Dosage: 1000 MG, BID
  5. ICLUSIG [Suspect]
     Active Substance: PONATINIB
     Dosage: 30 MG, QD
     Route: 048
     Dates: start: 20150922, end: 20160310

REACTIONS (5)
  - Thrombocytopenia [Not Recovered/Not Resolved]
  - Headache [Recovered/Resolved]
  - Abdominal pain lower [Recovered/Resolved]
  - Chest discomfort [Recovered/Resolved]
  - Blood pressure increased [Recovered/Resolved]

NARRATIVE: CASE EVENT DATE: 20160201
